FAERS Safety Report 11914884 (Version 1)
Quarter: 2016Q1

REPORT INFORMATION
  Report Type: Report from Study
  Country: US (occurrence: US)
  Receive Date: 20160113
  Receipt Date: 20160113
  Transmission Date: 20160526
  Serious: Yes (Other)
  Sender: FDA-Public Use
  Company Number: US-ABBVIE-16K-163-1534024-00

PATIENT
  Age: 60 Year
  Sex: Female

DRUGS (4)
  1. SYNVISC [Suspect]
     Active Substance: HYALURONATE SODIUM
     Indication: ARTHROPATHY
     Route: 065
     Dates: start: 201406
  2. OXYCODONE [Suspect]
     Active Substance: OXYCODONE
     Route: 065
     Dates: start: 2014, end: 2014
  3. OXYCODONE [Suspect]
     Active Substance: OXYCODONE
     Indication: PAIN
     Route: 065
     Dates: start: 2012, end: 2012
  4. HUMIRA [Suspect]
     Active Substance: ADALIMUMAB
     Indication: RHEUMATOID ARTHRITIS
     Route: 058
     Dates: start: 2004, end: 2005

REACTIONS (27)
  - Injection site erythema [Recovered/Resolved]
  - Intervertebral disc protrusion [Unknown]
  - Foraminotomy [Unknown]
  - Joint arthroplasty [Unknown]
  - Post procedural complication [Unknown]
  - Joint swelling [Unknown]
  - Chondropathy [Unknown]
  - Cataract [Unknown]
  - Injection site swelling [Recovered/Resolved]
  - Plica syndrome [Unknown]
  - Abnormal behaviour [Unknown]
  - Hypoaesthesia [Not Recovered/Not Resolved]
  - Musculoskeletal pain [Not Recovered/Not Resolved]
  - Osteoarthritis [Unknown]
  - Arthritis [Unknown]
  - Drug ineffective [Not Recovered/Not Resolved]
  - Restless legs syndrome [Not Recovered/Not Resolved]
  - Abnormal behaviour [Unknown]
  - Arthroscopy [Unknown]
  - Injection site pain [Recovered/Resolved]
  - Pain [Unknown]
  - Myofascial pain syndrome [Unknown]
  - Tendonitis [Not Recovered/Not Resolved]
  - Nerve compression [Unknown]
  - Drug hypersensitivity [Unknown]
  - Pain in extremity [Not Recovered/Not Resolved]
  - Urticaria [Unknown]

NARRATIVE: CASE EVENT DATE: 200602
